FAERS Safety Report 4741659-9 (Version None)
Quarter: 2005Q3

REPORT INFORMATION
  Report Type: 
  Country: None (occurrence: None)
  Receive Date: 20050801
  Receipt Date: 20050610
  Transmission Date: 20060218
  Serious: No
  Sender: FDA-Public Use
  Company Number: 2005PV000024

PATIENT
  Age: 70 Year
  Sex: Female
  Weight: 63.5036 kg

DRUGS (8)
  1. BYETTA [Suspect]
     Indication: DIABETES MELLITUS NON-INSULIN-DEPENDENT
     Dosage: 5 UG; BID; SC
     Route: 058
     Dates: start: 20050607
  2. ACTOS [Concomitant]
  3. METFORMIN [Concomitant]
  4. TOPROL-XL [Concomitant]
  5. ENALAPRIL [Concomitant]
  6. ASPIRIN [Concomitant]
  7. ZETIA [Concomitant]
  8. LESCOL [Concomitant]

REACTIONS (1)
  - NAUSEA [None]
